FAERS Safety Report 5862912-1 (Version None)
Quarter: 2008Q3

REPORT INFORMATION
  Report Type: 
  Country: None (occurrence: None)
  Receive Date: 20080828
  Receipt Date: 20080820
  Transmission Date: 20090109
  Serious: Yes (Other)
  Sender: FDA-Public Use
  Company Number: A0744764A

PATIENT
  Age: 53 Year
  Sex: Male

DRUGS (4)
  1. KIVEXA [Suspect]
     Indication: DRUG USE FOR UNKNOWN INDICATION
  2. COMBIVIR [Concomitant]
  3. REYATAZ [Concomitant]
  4. RITONAVIR [Concomitant]

REACTIONS (4)
  - DRUG INTOLERANCE [None]
  - GASTROINTESTINAL DISORDER [None]
  - HEPATITIS [None]
  - MALAISE [None]
